FAERS Safety Report 7289665-7 (Version None)
Quarter: 2011Q1

REPORT INFORMATION
  Report Type: 
  Country: None (occurrence: None)
  Receive Date: 20110214
  Receipt Date: 20110204
  Transmission Date: 20110831
  Serious: Yes (Hospitalization)
  Sender: FDA-Public Use
  Company Number: US-BIOGENIDEC-2011BI000950

PATIENT
  Age: 23 Year
  Sex: Female

DRUGS (2)
  1. BIRTH CONTROL PILLS [Concomitant]
     Indication: CONTRACEPTION
  2. AVONEX [Suspect]
     Indication: MULTIPLE SCLEROSIS
     Route: 030
     Dates: start: 20040221

REACTIONS (11)
  - SUBARACHNOID HAEMORRHAGE [None]
  - INJECTION SITE INDURATION [None]
  - SUBDURAL HAEMATOMA [None]
  - NIGHT BLINDNESS [None]
  - HEADACHE [None]
  - FALL [None]
  - CONVULSION [None]
  - MUSCLE ATROPHY [None]
  - SKULL FRACTURE [None]
  - INJECTION SITE HAEMORRHAGE [None]
  - RASH ERYTHEMATOUS [None]
